FAERS Safety Report 6146891-8 (Version None)
Quarter: 2009Q2

REPORT INFORMATION
  Report Type: 
  Country: None (occurrence: None)
  Receive Date: 20090406
  Receipt Date: 20090406
  Transmission Date: 20091009
  Serious: Yes (Hospitalization, Other)
  Sender: FDA-Public Use
  Company Number: None

PATIENT
  Age: 71 Year
  Sex: Male
  Weight: 74.8435 kg

DRUGS (6)
  1. LIPITOR [Suspect]
     Indication: BLOOD CHOLESTEROL INCREASED
     Dosage: 10 MG ONCE DAILY 047, OVER 5 YEARS TO 3/2/09
     Dates: end: 20090302
  2. ASPIRIN [Concomitant]
  3. MULTIVITIMIN TABLET [Concomitant]
  4. MINERALS TABLET [Concomitant]
  5. ASCORBIC ACID [Concomitant]
  6. FOLIC ACID [Concomitant]

REACTIONS (1)
  - MEMORY IMPAIRMENT [None]
